FAERS Safety Report 4752611-1 (Version None)
Quarter: 2005Q3

REPORT INFORMATION
  Report Type: 
  Country: None (occurrence: None)
  Receive Date: 20050824
  Receipt Date: 20050812
  Transmission Date: 20060218
  Serious: Yes (Hospitalization, Other)
  Sender: FDA-Public Use
  Company Number: 2005115042

PATIENT
  Age: 57 Year
  Sex: Male
  Weight: 121.1104 kg

DRUGS (9)
  1. LIPITOR [Suspect]
     Indication: BLOOD CHOLESTEROL INCREASED
     Dosage: 40 MG (40 MG, 1 IN 1 D),
  2. CATAFLAM [Suspect]
     Indication: PAIN
  3. LANTUS [Concomitant]
  4. INSULIN (INSULIN) [Concomitant]
  5. MONTELUKAST (MONTELUKAST) [Concomitant]
  6. ALLEGRA [Concomitant]
  7. DOCUSATE (DOCUSATE) [Concomitant]
  8. MIRALAX [Concomitant]
  9. HYDROCODONE (HYDROCODONE) [Concomitant]

REACTIONS (9)
  - ARTERIAL OCCLUSIVE DISEASE [None]
  - CARDIAC FAILURE CONGESTIVE [None]
  - DIALYSIS [None]
  - HYPOTENSION [None]
  - NAUSEA [None]
  - NEUROPATHY PERIPHERAL [None]
  - PERIPHERAL VASCULAR DISORDER [None]
  - RENAL FAILURE CHRONIC [None]
  - THERMAL BURN [None]
